FAERS Safety Report 8922263 (Version 1)
Quarter: 2012Q4

REPORT INFORMATION
  Report Type: 
  Country: DZ (occurrence: DZ)
  Receive Date: 20121123
  Receipt Date: 20121123
  Transmission Date: 20130627
  Serious: Yes (Hospitalization)
  Sender: FDA-Public Use
  Company Number: DZ-SANOFI-AVENTIS-2012SA085952

PATIENT
  Age: 42 Year
  Sex: Female

DRUGS (2)
  1. TAXOTERE [Suspect]
     Indication: BREAST CANCER
     Dosage: dose: 80 and 20 mg
route: perfusion
  2. TAXOTERE [Suspect]
     Indication: BREAST CANCER
     Dosage: dose: 80 and 20 mg
route: perfusion

REACTIONS (2)
  - Burns second degree [Recovering/Resolving]
  - Skin discolouration [Recovering/Resolving]
